FAERS Safety Report 11484396 (Version 1)
Quarter: 2015Q3

REPORT INFORMATION
  Report Type: Spontaneous
  Country: US (occurrence: US)
  Receive Date: 20150909
  Receipt Date: 20150909
  Transmission Date: 20151125
  Serious: No
  Sender: FDA-Public Use
  Company Number: US-JAZZ-2015-US-001181

PATIENT
  Age: 44 Year
  Sex: Female
  Weight: 54.88 kg

DRUGS (5)
  1. XYREM [Suspect]
     Active Substance: SODIUM OXYBATE
     Indication: CATAPLEXY
     Dosage: 3 G, BID
     Route: 048
     Dates: start: 201311, end: 201501
  2. XYREM [Suspect]
     Active Substance: SODIUM OXYBATE
     Dosage: 3 G, BID
     Route: 048
     Dates: start: 201501
  3. IBUPROFEN. [Suspect]
     Active Substance: IBUPROFEN
     Indication: TENDONITIS
     Dosage: UNK
     Dates: start: 2014, end: 201501
  4. XYREM [Suspect]
     Active Substance: SODIUM OXYBATE
     Indication: NARCOLEPSY
     Dosage: 2.25 G, BID
     Route: 048
     Dates: start: 20131031, end: 201311
  5. ALBUTEROL. [Concomitant]
     Active Substance: ALBUTEROL
     Indication: ASTHMA
     Dosage: UNK
     Route: 048

REACTIONS (5)
  - Tendonitis [Not Recovered/Not Resolved]
  - Nasopharyngitis [Unknown]
  - Sinus operation [Recovered/Resolved]
  - Gastritis [Recovering/Resolving]
  - Bronchitis [Recovering/Resolving]

NARRATIVE: CASE EVENT DATE: 201410
